FAERS Safety Report 7704156-4 (Version None)
Quarter: 2011Q3

REPORT INFORMATION
  Report Type: 
  Country: None (occurrence: None)
  Receive Date: 20110823
  Receipt Date: 20110719
  Transmission Date: 20111222
  Serious: Yes (Death, Hospitalization, Disabling)
  Sender: FDA-Public Use
  Company Number: FR-ACTELION-A-CH2009-24932

PATIENT
  Sex: Female
  Weight: 58.3 kg

DRUGS (10)
  1. ANALGESICS [Concomitant]
  2. TRACLEER [Suspect]
     Indication: SKIN ULCER
     Dosage: 62.5 MG, BID
     Route: 048
     Dates: start: 20090220, end: 20090402
  3. HYDROCORTISONE [Concomitant]
  4. ANTIBIOTICS [Concomitant]
  5. ISOPTIN [Concomitant]
  6. RAMIPRIL [Concomitant]
  7. ENZYME INHIBITORS [Concomitant]
  8. LASIX [Concomitant]
  9. ILOPROST [Concomitant]
     Route: 042
  10. COUMADIN [Concomitant]

REACTIONS (9)
  - DYSPNOEA [None]
  - PULMONARY ARTERIAL HYPERTENSION [None]
  - DISEASE PROGRESSION [None]
  - RIGHT VENTRICULAR FAILURE [None]
  - PULMONARY OEDEMA [None]
  - PULMONARY VENO-OCCLUSIVE DISEASE [None]
  - OEDEMA [None]
  - CARDIAC FAILURE [None]
  - HYPOTENSION [None]
